FAERS Safety Report 6523536-6 (Version None)
Quarter: 2009Q4

REPORT INFORMATION
  Report Type: 
  Country: None (occurrence: None)
  Receive Date: 20091231
  Receipt Date: 20091221
  Transmission Date: 20100525
  Serious: Yes (Hospitalization, Disabling, Other)
  Sender: FDA-Public Use
  Company Number: PHHY2009GB32125

PATIENT
  Age: 82 Year
  Sex: Female
  Weight: 70 kg

DRUGS (6)
  1. ALISKIREN [Suspect]
     Indication: HYPERTENSION
     Dosage: 150 MG DAILY
     Route: 048
     Dates: start: 20090601
  2. ASPIRIN [Concomitant]
     Dosage: 70 MG
     Route: 048
  3. IMDUR [Concomitant]
     Dosage: 60 MG
     Route: 048
  4. NEBIVOLOL [Concomitant]
     Dosage: 5 MG
     Route: 048
  5. OMEPRAZOLE [Concomitant]
     Dosage: 20 MG
     Route: 048
  6. TELMISARTAN [Concomitant]
     Dosage: 80 MG
     Route: 048

REACTIONS (5)
  - ARTHRITIS [None]
  - HYPERSENSITIVITY [None]
  - MOBILITY DECREASED [None]
  - MYALGIA [None]
  - OEDEMA PERIPHERAL [None]
